FAERS Safety Report 5949519-2 (Version None)
Quarter: 2008Q4

REPORT INFORMATION
  Report Type: 
  Country: None (occurrence: None)
  Receive Date: 20081112
  Receipt Date: 20081106
  Transmission Date: 20090506
  Serious: Yes (Death, Other)
  Sender: FDA-Public Use
  Company Number: PHBS2008US06240

PATIENT
  Age: 52 Year
  Sex: Female

DRUGS (11)
  1. CYCLOSPORINE [Suspect]
     Indication: STEM CELL TRANSPLANT
     Dosage: 5 MG/KG/DAY
     Route: 042
  2. CYCLOSPORINE [Suspect]
     Dosage: 2.5 MG/KG
     Route: 042
  3. CYCLOSPORINE [Suspect]
     Route: 048
  4. FLUDARABINE PHOSPHATE [Concomitant]
     Dosage: 30 MG/M2/DAY
     Route: 042
  5. ALEMTUZUMAB [Concomitant]
     Dosage: 20 MG/DAY
     Route: 042
  6. NEUPOGEN [Concomitant]
     Dosage: 5 UG/KG
  7. SULPHAMETHOXAZOLE [Concomitant]
     Indication: PROPHYLAXIS
     Route: 048
  8. TRIMETHOPRIM [Concomitant]
     Indication: PROPHYLAXIS
     Route: 048
  9. VALACYCLOVIR HCL [Concomitant]
     Indication: PROPHYLAXIS
     Dosage: 500 MG, TID
     Route: 048
  10. FLUCONAZOLE [Concomitant]
     Indication: PROPHYLAXIS
     Dosage: 400 MG/DAY
     Route: 048
  11. NORFLOXACIN [Concomitant]
     Indication: PROPHYLAXIS
     Dosage: 400 MG, BID
     Route: 048

REACTIONS (2)
  - ACUTE GRAFT VERSUS HOST DISEASE IN SKIN [None]
  - FUNGAL INFECTION [None]
